FAERS Safety Report 25917950 (Version 1)
Quarter: 2025Q4

REPORT INFORMATION
  Report Type: Spontaneous
  Country: ME (occurrence: ME)
  Receive Date: 20251014
  Receipt Date: 20251014
  Transmission Date: 20260117
  Serious: Yes (Death)
  Sender: DAIICHI
  Company Number: ME-ASTRAZENECA-202510BKN001006ME

PATIENT

DRUGS (1)
  1. TRASTUZUMAB DERUXTECAN [Suspect]
     Active Substance: TRASTUZUMAB DERUXTECAN
     Indication: Product used for unknown indication
     Dosage: UNK
     Route: 065

REACTIONS (1)
  - Malignant neoplasm progression [Fatal]
